FAERS Safety Report 6650112-7 (Version None)
Quarter: 2010Q1

REPORT INFORMATION
  Report Type: 
  Country: None (occurrence: None)
  Receive Date: 20100322
  Receipt Date: 20100305
  Transmission Date: 20100710
  Serious: Yes (Other)
  Sender: FDA-Public Use
  Company Number: AUR-APL-2010-00679

PATIENT
  Age: 78 Year
  Sex: Male

DRUGS (4)
  1. SIMVASTATIN [Suspect]
  2. CILAZAPRIL (VASCASE PLUS) [Concomitant]
  3. ALENDRONATE (FOSALAN) [Concomitant]
  4. AMLODIPINE [Concomitant]

REACTIONS (5)
  - DERMATITIS BULLOUS [None]
  - PEMPHIGOID [None]
  - PRURITUS GENERALISED [None]
  - RASH MORBILLIFORM [None]
  - RASH PAPULAR [None]
